FAERS Safety Report 9710070 (Version 2)
Quarter: 2018Q1

REPORT INFORMATION
  Report Type: Report from Study
  Country: US (occurrence: US)
  Receive Date: 20131126
  Receipt Date: 20180115
  Transmission Date: 20180509
  Serious: Yes (Other)
  Sender: FDA-Public Use
  Company Number: US-ROCHE-1305477

PATIENT
  Age: 15 Year
  Sex: Male
  Weight: 40.5 kg

DRUGS (13)
  1. NUTROPIN AQ [Suspect]
     Active Substance: SOMATROPIN
     Indication: BODY HEIGHT BELOW NORMAL
     Route: 058
     Dates: end: 2013
  2. CLONIDINE. [Concomitant]
     Active Substance: CLONIDINE
     Route: 065
  3. ATENOLOL. [Concomitant]
     Active Substance: ATENOLOL
     Route: 065
  4. LORTAB [Concomitant]
     Active Substance: ACETAMINOPHEN\HYDROCODONE BITARTRATE
  5. MYCOPHENOLATE MOFETIL. [Suspect]
     Active Substance: MYCOPHENOLATE MOFETIL
     Indication: PRODUCT USED FOR UNKNOWN INDICATION
     Route: 048
  6. OMEPRAZOLE. [Concomitant]
     Active Substance: OMEPRAZOLE
     Route: 065
  7. DRISDOL [Concomitant]
     Active Substance: ERGOCALCIFEROL
  8. SYNTHROID [Concomitant]
     Active Substance: LEVOTHYROXINE SODIUM
     Route: 065
  9. EPOGEN [Concomitant]
     Active Substance: ERYTHROPOIETIN
  10. SODIUM POLYSTYRENE SULFONATE. [Concomitant]
     Active Substance: SODIUM POLYSTYRENE SULFONATE
  11. HECTOROL [Concomitant]
     Active Substance: DOXERCALCIFEROL
     Route: 065
  12. NORVASC [Concomitant]
     Active Substance: AMLODIPINE BESYLATE
     Route: 065
  13. MIRALAX [Concomitant]
     Active Substance: POLYETHYLENE GLYCOL 3350
     Route: 065

REACTIONS (23)
  - Tricuspid valve incompetence [Unknown]
  - Abdominal pain [Recovered/Resolved]
  - Aortic dilatation [Unknown]
  - Asthenia [Unknown]
  - Renal transplant [Unknown]
  - Nephrotic syndrome [Unknown]
  - Thyroid function test abnormal [Not Recovered/Not Resolved]
  - Influenza [Recovered/Resolved]
  - Constipation [Unknown]
  - Muscle spasms [Unknown]
  - Acne [Unknown]
  - Pericardial effusion [Recovered/Resolved]
  - Eating disorder [Unknown]
  - Peritonitis [Unknown]
  - Thrombocytopenia [Unknown]
  - Hypertension [Unknown]
  - Vomiting [Recovered/Resolved]
  - Oedema [Unknown]
  - Serum ferritin increased [Unknown]
  - Pancytopenia [Unknown]
  - Post procedural haemorrhage [Unknown]
  - Mitral valve incompetence [Unknown]
  - Headache [Unknown]

NARRATIVE: CASE EVENT DATE: 20130919
